FAERS Safety Report 16589472 (Version 2)
Quarter: 2019Q3

REPORT INFORMATION
  Report Type: Spontaneous
  Country: CN (occurrence: CN)
  Receive Date: 20190718
  Receipt Date: 20190801
  Transmission Date: 20191004
  Serious: Yes (Other)
  Sender: FDA-Public Use
  Company Number: CN-ROCHE-2352824

PATIENT
  Age: 63 Year
  Sex: Male

DRUGS (7)
  1. OXALIPLATIN. [Concomitant]
     Active Substance: OXALIPLATIN
     Indication: ADENOCARCINOMA
  2. CALCIUM FOLINATE [Concomitant]
     Active Substance: LEUCOVORIN CALCIUM
     Indication: ADENOCARCINOMA
  3. 5-FLUOROURACIL [FLUOROURACIL] [Concomitant]
     Active Substance: FLUOROURACIL
     Indication: ADENOCARCINOMA
  4. 5-FLUOROURACIL [FLUOROURACIL] [Concomitant]
     Active Substance: FLUOROURACIL
     Indication: RECTAL CANCER
     Route: 065
     Dates: start: 20160226
  5. CAPECITABINE. [Suspect]
     Active Substance: CAPECITABINE
     Indication: RECTAL CANCER
     Route: 048
     Dates: start: 20160407
  6. OXALIPLATIN. [Concomitant]
     Active Substance: OXALIPLATIN
     Indication: RECTAL CANCER
     Route: 065
     Dates: start: 20160226
  7. CALCIUM FOLINATE [Concomitant]
     Active Substance: LEUCOVORIN CALCIUM
     Indication: RECTAL CANCER
     Route: 065
     Dates: start: 20160226

REACTIONS (11)
  - Anal incontinence [Unknown]
  - Gastrointestinal wall thickening [Unknown]
  - Oedema [Unknown]
  - Nocturia [Unknown]
  - Bone marrow failure [Unknown]
  - Intestinal obstruction [Unknown]
  - Ascites [Unknown]
  - Herpes virus infection [Unknown]
  - Dyschezia [Unknown]
  - Pelvic fluid collection [Unknown]
  - Gastrointestinal disorder [Unknown]

NARRATIVE: CASE EVENT DATE: 2017
